FAERS Safety Report 23146284 (Version 1)
Quarter: 2023Q4

REPORT INFORMATION
  Report Type: Spontaneous
  Country: HR (occurrence: HR)
  Receive Date: 20231104
  Receipt Date: 20231104
  Transmission Date: 20240110
  Serious: Yes (Hospitalization, Other)
  Sender: FDA-Public Use
  Company Number: HR-CELLTRIONHEALTHCAREHUNGARYKFT2023HR-009050

PATIENT
  Age: 50 Year
  Sex: Male
  Weight: 70 kg

DRUGS (5)
  1. CAPECITABINE [Suspect]
     Active Substance: CAPECITABINE
     Indication: Metastatic gastric cancer
     Dates: start: 202006
  2. TRASTUZUMAB [Suspect]
     Active Substance: TRASTUZUMAB
     Indication: Metastatic gastric cancer
     Dosage: CYCLIC
     Dates: start: 202006
  3. CISPLATIN [Suspect]
     Active Substance: CISPLATIN
     Indication: Metastatic gastric cancer
     Dates: start: 202006
  4. RAMUCIRUMAB [Concomitant]
     Active Substance: RAMUCIRUMAB
  5. PACLITAXEL [Concomitant]
     Active Substance: PACLITAXEL

REACTIONS (10)
  - Pneumonia [Recovered/Resolved]
  - Therapy non-responder [Recovered/Resolved]
  - Metastasis [Recovering/Resolving]
  - General physical health deterioration [Unknown]
  - Adenocarcinoma gastric [Unknown]
  - Disease progression [Recovering/Resolving]
  - Metastases to liver [Recovering/Resolving]
  - Weight decreased [Recovered/Resolved]
  - Vomiting [Unknown]
  - Dysphagia [Recovered/Resolved]
